FAERS Safety Report 8007032-5 (Version None)
Quarter: 2011Q4

REPORT INFORMATION
  Report Type: 
  Country: None (occurrence: None)
  Receive Date: 20111227
  Receipt Date: 20111221
  Transmission Date: 20120403
  Serious: Yes (Hospitalization)
  Sender: FDA-Public Use
  Company Number: DE-BRISTOL-MYERS SQUIBB COMPANY-15164791

PATIENT
  Age: 52 Year
  Sex: Male
  Weight: 77 kg

DRUGS (2)
  1. CISPLATIN [Suspect]
     Indication: GASTROOESOPHAGEAL CANCER
     Dosage: RECENT 09JUN10 ON DAY 1 OF CYCLE
     Route: 042
     Dates: start: 20100519, end: 20100609
  2. XELODA [Suspect]
     Indication: GASTROOESOPHAGEAL CANCER
     Dosage: ON DAY 1-15,INTERRUPTED ON 16JUN10 RECENT ON 16JUN10.TABLET
     Route: 048
     Dates: start: 20100519, end: 20100616

REACTIONS (2)
  - MYOCARDIAL INFARCTION [None]
  - INTRACARDIAC THROMBUS [None]
